FAERS Safety Report 11924198 (Version 3)
Quarter: 2016Q2

REPORT INFORMATION
  Report Type: Spontaneous
  Country: US (occurrence: US)
  Receive Date: 20160118
  Receipt Date: 20160519
  Transmission Date: 20160815
  Serious: Yes (Other)
  Sender: FDA-Public Use
  Company Number: US-SA-2015SA219266

PATIENT
  Age: 52 Year
  Sex: Male
  Weight: 81.6 kg

DRUGS (8)
  1. MULTAQ [Suspect]
     Active Substance: DRONEDARONE
     Indication: TACHYCARDIA
     Dosage: STRENGTH: 400 MG
     Route: 065
     Dates: start: 201406
  2. MULTAQ [Suspect]
     Active Substance: DRONEDARONE
     Indication: TACHYCARDIA
     Dosage: STRENGTH: 400 MG
     Route: 065
     Dates: start: 201406
  3. ASPIRIN. [Concomitant]
     Active Substance: ASPIRIN
     Indication: ANTICOAGULANT THERAPY
     Dates: start: 201106
  4. MULTAQ [Suspect]
     Active Substance: DRONEDARONE
     Indication: TACHYCARDIA
     Dosage: STRENGTH: 400 MG
     Route: 065
     Dates: start: 201406
  5. PRILOSEC [Concomitant]
     Active Substance: OMEPRAZOLE MAGNESIUM
     Indication: GASTROOESOPHAGEAL REFLUX DISEASE
     Dates: start: 201407
  6. MULTAQ [Suspect]
     Active Substance: DRONEDARONE
     Indication: ATRIAL FLUTTER
     Dosage: STRENGTH: 400 MG
     Route: 065
     Dates: start: 201406
  7. MULTAQ [Suspect]
     Active Substance: DRONEDARONE
     Indication: ATRIAL FLUTTER
     Dosage: STRENGTH: 400 MG
     Route: 065
     Dates: start: 201406
  8. MULTAQ [Suspect]
     Active Substance: DRONEDARONE
     Indication: ATRIAL FLUTTER
     Dosage: STRENGTH: 400 MG
     Route: 065
     Dates: start: 201406

REACTIONS (7)
  - Arrhythmia [Not Recovered/Not Resolved]
  - Headache [Not Recovered/Not Resolved]
  - Cardiac flutter [Not Recovered/Not Resolved]
  - Dizziness [Not Recovered/Not Resolved]
  - Flatulence [Not Recovered/Not Resolved]
  - Gastrooesophageal reflux disease [Not Recovered/Not Resolved]
  - Condition aggravated [Not Recovered/Not Resolved]

NARRATIVE: CASE EVENT DATE: 201512
